FAERS Safety Report 5893232-7 (Version None)
Quarter: 2008Q3

REPORT INFORMATION
  Report Type: 
  Country: None (occurrence: None)
  Receive Date: 20080923
  Receipt Date: 20080918
  Transmission Date: 20090109
  Serious: Yes (Other)
  Sender: FDA-Public Use
  Company Number: B0538187A

PATIENT
  Sex: Male

DRUGS (2)
  1. NICABATE CQ 2MG LOZENGE [Suspect]
     Indication: DRUG WITHDRAWAL MAINTENANCE THERAPY
     Route: 002
     Dates: start: 20040901
  2. NICORETTE [Suspect]
     Indication: DRUG WITHDRAWAL MAINTENANCE THERAPY
     Route: 002

REACTIONS (2)
  - DEPENDENCE [None]
  - INCORRECT DRUG ADMINISTRATION DURATION [None]
